FAERS Safety Report 17804122 (Version 1)
Quarter: 2020Q2

REPORT INFORMATION
  Report Type: Report from Study
  Country: US (occurrence: US)
  Receive Date: 20200519
  Receipt Date: 20200519
  Transmission Date: 20200714
  Serious: Yes (Death, Hospitalization, Other)
  Sender: FDA-Public Use
  Company Number: US-GLAXOSMITHKLINE-2019-TSO02871-US

PATIENT
  Sex: Female
  Weight: 99 kg

DRUGS (5)
  1. NIRAPARIB [Suspect]
     Active Substance: NIRAPARIB
     Dosage: 300 MG, QD, SOMETIMES WITH FOOD
     Route: 048
     Dates: start: 20190801
  2. NIRAPARIB [Suspect]
     Active Substance: NIRAPARIB
     Indication: OVARIAN CANCER
     Dosage: 300 MG, QD, SOMETIMES WITH FOOD
     Route: 048
     Dates: start: 20190801
  3. NIRAPARIB [Suspect]
     Active Substance: NIRAPARIB
     Dosage: 200 MG, QD
  4. HEPARIN [Suspect]
     Active Substance: HEPARIN SODIUM
     Indication: PRODUCT USED FOR UNKNOWN INDICATION
     Dosage: UNK
  5. NIRAPARIB [Suspect]
     Active Substance: NIRAPARIB
     Dosage: 100 MG, QD

REACTIONS (9)
  - Blood count abnormal [Recovered/Resolved]
  - Dyspepsia [Unknown]
  - Urinary tract infection [Recovered/Resolved]
  - Rash [Recovered/Resolved]
  - Ovarian cancer metastatic [Fatal]
  - Platelet count decreased [Recovered/Resolved]
  - Cardiac failure [Fatal]
  - Sinus disorder [Unknown]
  - Constipation [Recovering/Resolving]
